FAERS Safety Report 20233770 (Version 2)
Quarter: 2023Q2

REPORT INFORMATION
  Report Type: Spontaneous
  Country: US (occurrence: US)
  Receive Date: 20211227
  Receipt Date: 20230504
  Transmission Date: 20230721
  Serious: No
  Sender: FDA-Public Use
  Company Number: US-SANOFI-00905577

PATIENT
  Age: 80 Year
  Sex: Male

DRUGS (2)
  1. LANTUS SOLOSTAR [Suspect]
     Active Substance: INSULIN GLARGINE
     Indication: Type 2 diabetes mellitus
     Dosage: 18 UNITS AM, 20 UNITS PM, Q12H
     Route: 065
  2. LANTUS SOLOSTAR [Suspect]
     Active Substance: INSULIN GLARGINE
     Dosage: 22 UNITS AT BREAKFAST AND 26 UNITS AT DINNER IN THE EVENING

REACTIONS (2)
  - Hypoacusis [Unknown]
  - Inappropriate schedule of product administration [Unknown]
